FAERS Safety Report 4579888-X (Version None)
Quarter: 2005Q1

REPORT INFORMATION
  Report Type: 
  Country: None (occurrence: None)
  Receive Date: 20050210
  Receipt Date: 20050131
  Transmission Date: 20050727
  Serious: Yes (Hospitalization, Other)
  Sender: FDA-Public Use
  Company Number: 2005023287

PATIENT
  Age: 80 Year
  Sex: Female
  Weight: 57 kg

DRUGS (6)
  1. NEURONTIN [Suspect]
     Indication: POST HERPETIC NEURALGIA
     Dosage: 1800 MG (600 MG, 3 IN 1 D), ORAL
     Route: 048
     Dates: start: 20041125, end: 20041220
  2. MORPHINE SULFATE [Suspect]
     Indication: ILL-DEFINED DISORDER
     Dosage: 20 MG (5 MG, IN 1 D), ORAL
     Route: 048
     Dates: start: 20041216, end: 20041220
  3. FENTANYL [Suspect]
     Indication: ILL-DEFINED DISORDER
     Dosage: (25 MCG, EVERY 2 WEEKS)
     Dates: start: 20041216, end: 20041220
  4. ACETYLSALICYLCATE LYSINE (ACETYLSALICYLATE LYSINE) [Concomitant]
  5. BUMETANIDE [Concomitant]
  6. AMIODARONE HCL [Concomitant]

REACTIONS (5)
  - CONFUSIONAL STATE [None]
  - CREATININE RENAL CLEARANCE DECREASED [None]
  - FALL [None]
  - LUMBAR VERTEBRA INJURY [None]
  - MALAISE [None]
